FAERS Safety Report 4539902-4 (Version None)
Quarter: 2004Q4

REPORT INFORMATION
  Report Type: 
  Country: None (occurrence: None)
  Receive Date: 20041223
  Receipt Date: 20041208
  Transmission Date: 20050328
  Serious: Yes (Hospitalization, Other)
  Sender: FDA-Public Use
  Company Number: USA041285635

PATIENT
  Age: 98 Year
  Sex: Male

DRUGS (1)
  1. SYMBYAX [Suspect]
     Dates: start: 20040101, end: 20040101

REACTIONS (8)
  - ARRHYTHMIA [None]
  - ATRIOVENTRICULAR BLOCK [None]
  - FALL [None]
  - HEAD INJURY [None]
  - HEPATIC ENZYME INCREASED [None]
  - LOSS OF CONSCIOUSNESS [None]
  - RENAL IMPAIRMENT [None]
  - SYNCOPE [None]
